FAERS Safety Report 19168740 (Version 1)
Quarter: 2021Q2

REPORT INFORMATION
  Report Type: Other
  Country: JP (occurrence: JP)
  Receive Date: 20210422
  Receipt Date: 20210422
  Transmission Date: 20210717
  Serious: Yes (Other)
  Sender: FDA-Public Use
  Company Number: JP-ROCHE-2812628

PATIENT

DRUGS (2)
  1. BEVACIZUMAB. [Suspect]
     Active Substance: BEVACIZUMAB
     Indication: COLORECTAL CANCER METASTATIC
     Dosage: ON DAYS 1 AND 15
     Route: 065
  2. TAS?102 [Suspect]
     Active Substance: TIPIRACIL HYDROCHLORIDE\TRIFLURIDINE
     Indication: COLORECTAL CANCER METASTATIC
     Dosage: ON DAYS 1?5 AND 15?19 OF EVERY 28?DAY CYCLE
     Route: 048

REACTIONS (3)
  - Anaemia [Unknown]
  - Neutropenia [Unknown]
  - Malaise [Unknown]
